FAERS Safety Report 11598013 (Version 1)
Quarter: 2015Q3

REPORT INFORMATION
  Report Type: Spontaneous
  Country: US (occurrence: US)
  Receive Date: 20150916
  Receipt Date: 20150916
  Transmission Date: 20151125
  Serious: No
  Sender: FDA-Public Use
  Company Number: US-ELI_LILLY_AND_COMPANY-US200801000401

PATIENT
  Age: 74 Year
  Sex: Female

DRUGS (5)
  1. VITAMIN D [Concomitant]
     Active Substance: CHOLECALCIFEROL
  2. CALCIUM [Concomitant]
     Active Substance: CALCIUM
  3. COUMADIN [Concomitant]
     Active Substance: WARFARIN SODIUM
  4. ZOCOR [Concomitant]
     Active Substance: SIMVASTATIN
  5. FORTEO [Suspect]
     Active Substance: TERIPARATIDE
     Indication: OSTEOPOROSIS
     Dates: start: 20071004

REACTIONS (3)
  - Blood pressure increased [Unknown]
  - Back pain [Not Recovered/Not Resolved]
  - Abasia [Unknown]

NARRATIVE: CASE EVENT DATE: 200712
